FAERS Safety Report 7280900-8 (Version None)
Quarter: 2010Q4

REPORT INFORMATION
  Report Type: 
  Country: None (occurrence: None)
  Receive Date: 20101221
  Receipt Date: 20091028
  Transmission Date: 20110411
  Serious: Yes (Hospitalization)
  Sender: FDA-Public Use
  Company Number: WAES 0910USA03907

PATIENT
  Age: 75 Year
  Sex: Male

DRUGS (6)
  1. JANUVIA [Suspect]
     Indication: TYPE 2 DIABETES MELLITUS
     Dosage: 100 MG/DAILY/PO
     Route: 048
     Dates: start: 20091001, end: 20091001
  2. DIOVAN [Concomitant]
  3. DOSTINEX [Concomitant]
  4. NORVASC [Concomitant]
  5. GLIPIZIDE [Concomitant]
  6. METFORMIN [Concomitant]

REACTIONS (2)
  - CYST [None]
  - PANCREATITIS [None]
